FAERS Safety Report 23799512 (Version 1)
Quarter: 2024Q2

REPORT INFORMATION
  Report Type: Spontaneous
  Country: CH (occurrence: CH)
  Receive Date: 20240430
  Receipt Date: 20240430
  Transmission Date: 20240716
  Serious: Yes (Death, Other)
  Sender: FDA-Public Use
  Company Number: CH-BAYER-2024A062340

PATIENT
  Sex: Male

DRUGS (3)
  1. LAROTRECTINIB [Suspect]
     Active Substance: LAROTRECTINIB
     Indication: Head and neck cancer
     Dosage: 100 MG, BID
     Dates: start: 202207
  2. LAROTRECTINIB [Suspect]
     Active Substance: LAROTRECTINIB
     Indication: Sarcoma
  3. REPOTRECTINIB [Suspect]
     Active Substance: REPOTRECTINIB
     Dosage: UNK

REACTIONS (2)
  - Head and neck cancer [Fatal]
  - Sarcoma [Fatal]
